FAERS Safety Report 8326406-6 (Version None)
Quarter: 2012Q2

REPORT INFORMATION
  Report Type: 
  Country: None (occurrence: None)
  Receive Date: 20120501
  Receipt Date: 20120420
  Transmission Date: 20120825
  Serious: Yes (Death, Life-Threatening, Hospitalization, Disabling, Other)
  Sender: FDA-Public Use
  Company Number: US-MERCK-1108USA03514

PATIENT
  Age: 49 Year
  Sex: Male
  Weight: 90 kg

DRUGS (8)
  1. FOSAMAX [Suspect]
     Indication: BONE LOSS
     Route: 048
     Dates: start: 20041215, end: 20080901
  2. ZOLPIDEM TARTRATE [Concomitant]
     Route: 065
  3. FOLIC ACID [Concomitant]
     Route: 048
  4. ZANTAC [Concomitant]
     Route: 048
  5. LOMOTIL [Concomitant]
     Route: 048
  6. MERCAPTOPURINE [Concomitant]
     Route: 048
     Dates: start: 19910101
  7. FOSAMAX [Suspect]
     Indication: OSTEOPOROSIS
     Route: 048
     Dates: start: 20041215, end: 20080901
  8. AZULFIDINE [Concomitant]
     Route: 048
     Dates: start: 19910101

REACTIONS (7)
  - OESOPHAGEAL IRRITATION [None]
  - METASTASES TO LIVER [None]
  - OESOPHAGEAL CARCINOMA [None]
  - DYSPEPSIA [None]
  - GALLBLADDER DISORDER [None]
  - OESOPHAGEAL PAIN [None]
  - BONE DENSITY DECREASED [None]
